FAERS Safety Report 21301053 (Version 1)
Quarter: 2022Q3

REPORT INFORMATION
  Report Type: Report from Study
  Country: US (occurrence: US)
  Receive Date: 20220907
  Receipt Date: 20220907
  Transmission Date: 20221026
  Serious: No
  Sender: FDA-Public Use
  Company Number: US-Ipsen Biopharmaceuticals, Inc.-2022-24992

PATIENT
  Age: 55 Year
  Sex: Male

DRUGS (1)
  1. SOMATULINE DEPOT [Suspect]
     Active Substance: LANREOTIDE ACETATE
     Indication: Carcinoid tumour
     Dosage: 120MG, BUTTOCKS, DEEP SUBCUTANEOUS
     Route: 058
     Dates: start: 201810

REACTIONS (2)
  - Fatigue [Unknown]
  - Off label use [Unknown]
